FAERS Safety Report 5761964-7 (Version None)
Quarter: 2008Q2

REPORT INFORMATION
  Report Type: 
  Country: None (occurrence: None)
  Receive Date: 20080603
  Receipt Date: 20080520
  Transmission Date: 20081010
  Serious: Yes (Hospitalization)
  Sender: FDA-Public Use
  Company Number: 08P-062-0452845-00

PATIENT
  Sex: Female

DRUGS (1)
  1. SYNAGIS [Suspect]
     Indication: IMMUNISATION
     Dosage: SUBCUTANEOUS
     Route: 058
     Dates: start: 20080201, end: 20080201

REACTIONS (2)
  - CYANOSIS [None]
  - TRACHEOMALACIA [None]
